FAERS Safety Report 5195074-7 (Version None)
Quarter: 2006Q4

REPORT INFORMATION
  Report Type: 
  Country: None (occurrence: None)
  Receive Date: 20061229
  Receipt Date: 20060822
  Transmission Date: 20070319
  Serious: Yes (Hospitalization, Other)
  Sender: FDA-Public Use
  Company Number: US-NOVOPROD-256297

PATIENT
  Age: 72 Year
  Sex: Female

DRUGS (2)
  1. NOVOSEVEN [Suspect]
     Indication: TRAUMATIC HAEMORRHAGE
     Dosage: 4.8 MG, UNK
  2. WARFARIN                           /00014802/ [Concomitant]
     Indication: ILL-DEFINED DISORDER

REACTIONS (1)
  - MYOCARDIAL INFARCTION [None]
